FAERS Safety Report 7575376-7 (Version None)
Quarter: 2011Q2

REPORT INFORMATION
  Report Type: 
  Country: None (occurrence: None)
  Receive Date: 20110627
  Receipt Date: 20110614
  Transmission Date: 20111010
  Serious: Yes (Hospitalization, Other)
  Sender: FDA-Public Use
  Company Number: US-ELI_LILLY_AND_COMPANY-US201101004044

PATIENT
  Sex: Female
  Weight: 50.34 kg

DRUGS (13)
  1. ACETAMINOPHEN [Concomitant]
     Dosage: 6 DF,  DAILY (MAXIMUM)
  2. FOLIC ACID [Concomitant]
  3. IBUPROFEN [Concomitant]
     Indication: ARTHRITIS
  4. LISINOPRIL [Concomitant]
  5. COPPER [Concomitant]
  6. FORTEO [Suspect]
     Dosage: 20 UG, QD
  7. VITAMIN D [Concomitant]
  8. FORTEO [Suspect]
     Dosage: 20 UG, DAILY (1/D)
  9. METHOTREXATE [Concomitant]
     Dosage: UNK, WEEKLY (1/W)
  10. FORTEO [Suspect]
     Indication: OSTEOPOROSIS
     Dosage: 20 UG, DAILY (1/D)
     Route: 065
     Dates: start: 20101224
  11. CALCIUM W/VITAMIN D NOS [Concomitant]
  12. FORTEO [Suspect]
     Dosage: 20 UG, DAILY (1/D)
     Route: 065
  13. PREDNISONE [Concomitant]
     Dosage: 2.5 MG, UNK

REACTIONS (17)
  - ILL-DEFINED DISORDER [None]
  - PAIN IN EXTREMITY [None]
  - DYSPNOEA [None]
  - PANIC REACTION [None]
  - SENSORY DISTURBANCE [None]
  - DIZZINESS POSTURAL [None]
  - UPPER LIMB FRACTURE [None]
  - LOWER LIMB FRACTURE [None]
  - RASH PRURITIC [None]
  - WEIGHT BEARING DIFFICULTY [None]
  - DRUG DOSE OMISSION [None]
  - TIBIA FRACTURE [None]
  - PROCEDURAL PAIN [None]
  - FIBULA FRACTURE [None]
  - FALL [None]
  - GAIT DISTURBANCE [None]
  - RASH [None]
